FAERS Safety Report 9873890 (Version 2)
Quarter: 2014Q1

REPORT INFORMATION
  Report Type: Other
  Country: US (occurrence: US)
  Receive Date: 20140206
  Receipt Date: 20140206
  Transmission Date: 20141002
  Serious: No
  Sender: FDA-Public Use
  Company Number: US-ACORDA-ACO_32289_2012

PATIENT
  Sex: Female
  Weight: 84.81 kg

DRUGS (5)
  1. AMPYRA [Suspect]
     Indication: MULTIPLE SCLEROSIS
     Dosage: 10 MG, BID
     Dates: start: 201208
  2. AMPYRA [Suspect]
     Dosage: 10 MG, BID
     Dates: start: 201209
  3. GILENYA [Concomitant]
     Indication: MULTIPLE SCLEROSIS
     Dosage: 5 MG, QD
     Route: 048
  4. LISINOPRIL [Concomitant]
     Indication: HYPERTENSION
     Dosage: 2.5 MG, UNK
     Route: 048
  5. CITALOPRAM [Concomitant]
     Indication: PRODUCT USED FOR UNKNOWN INDICATION
     Dosage: 20 MG, QD
     Route: 048

REACTIONS (6)
  - Fall [Not Recovered/Not Resolved]
  - Pneumonia [Recovering/Resolving]
  - Muscular weakness [Not Recovered/Not Resolved]
  - Insomnia [Recovered/Resolved]
  - Balance disorder [Recovering/Resolving]
  - Nasopharyngitis [Recovered/Resolved]
